FAERS Safety Report 17006763 (Version 1)
Quarter: 2019Q4

REPORT INFORMATION
  Report Type: Spontaneous
  Country: US (occurrence: US)
  Receive Date: 20191107
  Receipt Date: 20191107
  Transmission Date: 20200122
  Serious: No
  Sender: FDA-Public Use
  Company Number: US-TARO-2018TAR00909

PATIENT
  Age: 69 Year
  Sex: Female
  Weight: 53.06 kg

DRUGS (4)
  1. ATENOLOL. [Concomitant]
     Active Substance: ATENOLOL
  2. LISINOPRIL. [Concomitant]
     Active Substance: LISINOPRIL
  3. MUPIROCIN OINTMENT USP 2% [Suspect]
     Active Substance: MUPIROCIN
     Indication: WOUND
     Dosage: SMALL AMOUNT, 2X/DAY
     Route: 061
     Dates: start: 20181224, end: 20181224
  4. AQUAPHOR [Concomitant]
     Active Substance: PETROLATUM

REACTIONS (4)
  - Off label use [Recovered/Resolved]
  - Paraesthesia [Recovered/Resolved]
  - Inappropriate schedule of product administration [Recovered/Resolved]
  - Agitation [Recovered/Resolved]

NARRATIVE: CASE EVENT DATE: 20181224
